FAERS Safety Report 6254234-4 (Version None)
Quarter: 2009Q2

REPORT INFORMATION
  Report Type: 
  Country: None (occurrence: None)
  Receive Date: 20090630
  Receipt Date: 20090630
  Transmission Date: 20091009
  Serious: Yes (Other)
  Sender: FDA-Public Use
  Company Number: None

PATIENT
  Age: 63 Year
  Sex: Male
  Weight: 92.0802 kg

DRUGS (1)
  1. LOSARTAN POTASSIUM [Suspect]
     Indication: HYPERTENSION
     Dosage: 1 PILL DAILY PO
     Route: 048
     Dates: start: 20090610, end: 20090629

REACTIONS (3)
  - BLISTER [None]
  - BURNING SENSATION [None]
  - PRURITUS [None]
